FAERS Safety Report 18791280 (Version 2)
Quarter: 2021Q2

REPORT INFORMATION
  Report Type: Spontaneous
  Country: US (occurrence: US)
  Receive Date: 20210127
  Receipt Date: 20210531
  Transmission Date: 20210717
  Serious: No
  Sender: FDA-Public Use
  Company Number: US-ASTRAZENECA-2021A006201

PATIENT
  Age: 100 Month
  Sex: Male
  Weight: 27.7 kg

DRUGS (2)
  1. PULMICORT FLEXHALER [Suspect]
     Active Substance: BUDESONIDE
     Indication: ASTHMA
     Dosage: THEY PICKED UP A NEW PRESCRIPTION FROM THE DOCTOR AND THE PATIENT USED THE UNIT ALL UP.
     Route: 055
  2. PULMICORT FLEXHALER [Suspect]
     Active Substance: BUDESONIDE
     Indication: ASTHMA
     Route: 055
     Dates: start: 2020, end: 2020

REACTIONS (4)
  - Device issue [Unknown]
  - Product dose omission issue [Unknown]
  - Intentional device misuse [Unknown]
  - Cough [Unknown]

NARRATIVE: CASE EVENT DATE: 202012
